FAERS Safety Report 19176061 (Version 1)
Quarter: 2021Q2

REPORT INFORMATION
  Report Type: Spontaneous
  Country: CH (occurrence: CH)
  Receive Date: 20210423
  Receipt Date: 20210423
  Transmission Date: 20210717
  Serious: Yes (Life-Threatening, Hospitalization, Other)
  Sender: FDA-Public Use
  Company Number: CH-TEVA-2021-CH-1902156

PATIENT
  Age: 20 Year
  Sex: Female
  Weight: 48.8 kg

DRUGS (5)
  1. VELBE [Concomitant]
     Active Substance: VINBLASTINE SULFATE
     Dosage: 5MG / M2 (TOTAL OF 13TH CYCLES WEEKLY FROM NOVEMBER 16, 2020)
     Route: 042
     Dates: start: 20201116, end: 20210208
  2. TOPAMAX [Concomitant]
     Active Substance: TOPIRAMATE
     Dosage: 600 MILLIGRAM DAILY; 300 ? 0 ? 300 ? 0
     Route: 048
  3. URBANYL [Concomitant]
     Active Substance: CLOBAZAM
     Dosage: 10 MILLIGRAM DAILY; 5 ? 0 ? 5 ? 0
     Route: 048
  4. LAMOTRIGIN [Concomitant]
     Active Substance: LAMOTRIGINE
     Dosage: 600 MILLIGRAM DAILY; 300 ? 0 ? 300 ? 0
     Route: 048
  5. METHOTREXAT [Suspect]
     Active Substance: METHOTREXATE
     Indication: DESMOID TUMOUR
     Dosage: 30 MG / M2 (TOTAL OF 13TH CYCLES WEEKLY FROM NOVEMBER 16, 2020)
     Route: 042
     Dates: start: 20201116, end: 20210208

REACTIONS (1)
  - Pneumonitis [Recovering/Resolving]

NARRATIVE: CASE EVENT DATE: 20210217
